FAERS Safety Report 11316661 (Version 1)
Quarter: 2015Q3

REPORT INFORMATION
  Report Type: Spontaneous
  Country: GB (occurrence: None)
  Receive Date: 20150724
  Receipt Date: 20150724
  Transmission Date: 20151125
  Serious: Yes (Hospitalization, Other)
  Sender: FDA-Public Use
  Company Number: CL-642-2015

PATIENT
  Age: 67 Year
  Sex: Male
  Weight: 72.5 kg

DRUGS (20)
  1. ATORVASTATIN [Concomitant]
     Active Substance: ATORVASTATIN
  2. OXYCODONE [Concomitant]
     Active Substance: OXYCODONE
  3. ZOPLICONE [Concomitant]
     Active Substance: ZOPICLONE
  4. TAMSULOSIN HYDROCHLORIDE. [Concomitant]
     Active Substance: TAMSULOSIN HYDROCHLORIDE
  5. LEVOFLOXACIN UNK [Suspect]
     Active Substance: LEVOFLOXACIN
     Indication: INFECTIOUS PLEURAL EFFUSION
     Dosage: BD
     Route: 042
     Dates: start: 20150531, end: 20150703
  6. AMITRIPYLINE [Concomitant]
  7. BISOPROLOL [Concomitant]
     Active Substance: BISOPROLOL
  8. CARBOCISTEINE [Concomitant]
     Active Substance: CARBOCYSTEINE
  9. LANSOPRAZOLE. [Concomitant]
     Active Substance: LANSOPRAZOLE
  10. ISOSORBIDE. [Concomitant]
     Active Substance: ISOSORBIDE
  11. NICOTINE. [Concomitant]
     Active Substance: NICOTINE
  12. SERITALINE [Concomitant]
  13. GLYCERYL [Concomitant]
  14. LORAZEPAM. [Concomitant]
     Active Substance: LORAZEPAM
  15. PARACETAMOL [Concomitant]
     Active Substance: ACETAMINOPHEN
  16. SALBUTAMOL [Concomitant]
     Active Substance: ALBUTEROL
  17. ANORO ELLIPTA [Concomitant]
     Active Substance: UMECLIDINIUM BROMIDE\VILANTEROL TRIFENATATE
  18. ASPIRIN. [Concomitant]
     Active Substance: ASPIRIN
  19. CERON [Concomitant]
     Active Substance: CHLORPHENIRAMINE MALEATE\PHENYLEPHRINE HYDROCHLORIDE
  20. TRINITRATE [Concomitant]

REACTIONS (3)
  - Confusional state [None]
  - Delirium [None]
  - Hallucination, visual [None]

NARRATIVE: CASE EVENT DATE: 20150618
